FAERS Safety Report 19865968 (Version 2)
Quarter: 2022Q1

REPORT INFORMATION
  Report Type: Spontaneous
  Country: US (occurrence: US)
  Receive Date: 20210921
  Receipt Date: 20220311
  Transmission Date: 20220423
  Serious: No
  Sender: FDA-Public Use
  Company Number: US-SUNOVION-2021SUN003460

PATIENT
  Age: 58 Year
  Sex: Male

DRUGS (1)
  1. KYNMOBI [Suspect]
     Active Substance: APOMORPHINE HYDROCHLORIDE
     Dosage: 15 MG (2 TO 5 TIMES PER DAY)
     Route: 060

REACTIONS (2)
  - Dysgeusia [Unknown]
  - Stomatitis [Unknown]
